FAERS Safety Report 8129973-0 (Version None)
Quarter: 2012Q1

REPORT INFORMATION
  Report Type: 
  Country: None (occurrence: None)
  Receive Date: 20120210
  Receipt Date: 20120203
  Transmission Date: 20120608
  Serious: Yes (Disabling)
  Sender: FDA-Public Use
  Company Number: JP-ABBOTT-09P-087-0615861-00

PATIENT
  Sex: Male
  Weight: 60 kg

DRUGS (9)
  1. BASEN [Concomitant]
     Indication: DIABETES MELLITUS
     Route: 048
     Dates: end: 20090710
  2. CLARITHROMYCIN [Suspect]
     Indication: HELICOBACTER INFECTION
     Route: 048
     Dates: start: 20090707, end: 20090710
  3. GLYBURIDE [Suspect]
     Indication: TYPE 2 DIABETES MELLITUS
     Route: 048
     Dates: end: 20090710
  4. LANSOPRAZOLE [Concomitant]
     Indication: GASTRIC ULCER
     Route: 048
     Dates: start: 20090707, end: 20090710
  5. METFORMIN HCL [Concomitant]
     Indication: DIABETES MELLITUS
     Route: 048
     Dates: end: 20090710
  6. AMOXICILLIN [Concomitant]
     Indication: HELICOBACTER INFECTION
     Route: 048
     Dates: start: 20090707, end: 20090710
  7. OLMESARTAN MEDOXOMIL [Concomitant]
     Indication: HYPERTENSION
     Route: 048
     Dates: end: 20090710
  8. ACTOS [Concomitant]
     Indication: DIABETES MELLITUS
     Route: 048
     Dates: end: 20090710
  9. CLARITHROMYCIN [Suspect]
     Dates: start: 20110701, end: 20110701

REACTIONS (2)
  - HYPOGLYCAEMIC COMA [None]
  - MENTAL IMPAIRMENT [None]
